FAERS Safety Report 9378943 (Version 4)
Quarter: 2013Q3

REPORT INFORMATION
  Report Type: Spontaneous
  Country: US (occurrence: US)
  Receive Date: 20130702
  Receipt Date: 20130827
  Transmission Date: 20140515
  Serious: Yes (Hospitalization, Other)
  Sender: FDA-Public Use
  Company Number: US-PFIZER INC-2013191573

PATIENT
  Age: 49 Year
  Sex: Male

DRUGS (3)
  1. BOSULIF [Suspect]
     Indication: CHRONIC MYELOID LEUKAEMIA
     Dosage: 500 MG, 1X/DAY
     Route: 048
     Dates: start: 20130326
  2. HYDROXYUREA [Suspect]
     Dosage: 500 MG, 4X/DAY
  3. CARVEDILOL [Concomitant]
     Dosage: 6.25 MG, 2X/DAY (EVERY 12 HOURS)

REACTIONS (12)
  - Blast cell crisis [Unknown]
  - Oedematous pancreatitis [Unknown]
  - Febrile neutropenia [Recovered/Resolved]
  - Pneumonia [Recovered/Resolved]
  - Disease progression [Unknown]
  - Chronic myeloid leukaemia [Unknown]
  - Back pain [Recovered/Resolved]
  - Chromaturia [Unknown]
  - White blood cell count increased [Unknown]
  - Otitis externa [Recovered/Resolved]
  - Abdominal pain [Recovered/Resolved]
  - Fatigue [Unknown]
